FAERS Safety Report 8254616-5 (Version None)
Quarter: 2012Q1

REPORT INFORMATION
  Report Type: 
  Country: None (occurrence: None)
  Receive Date: 20120329
  Receipt Date: 20120315
  Transmission Date: 20120608
  Serious: Yes (Other)
  Sender: FDA-Public Use
  Company Number: 2012TP000060

PATIENT
  Age: 35 Year
  Sex: Female

DRUGS (15)
  1. LIDODERM [Suspect]
     Dosage: TOP
     Route: 061
  2. ALLEGRA [Concomitant]
  3. CREON /00014701/ [Concomitant]
  4. ATIVAN [Concomitant]
  5. NIACIN [Concomitant]
  6. REMERON [Concomitant]
  7. SINGULAIR /0136201/ [Concomitant]
  8. CARISOPRODOL [Suspect]
     Indication: MUSCLE SPASMS
     Dosage: TID; PO
     Route: 048
  9. CARAFATE [Concomitant]
  10. URISPAS [Concomitant]
  11. DURAGESIC-100 [Suspect]
  12. PERCOCET [Suspect]
  13. PHENERGAN [Concomitant]
  14. LEVSIN PB [Suspect]
     Indication: CYSTITIS INTERSTITIAL
     Dosage: 0.125 MG; Q4H;  SL
     Route: 060
     Dates: start: 20100101
  15. PROTONIX [Concomitant]

REACTIONS (5)
  - SUICIDE ATTEMPT [None]
  - FRUSTRATION [None]
  - POLLAKIURIA [None]
  - REFUSAL OF TREATMENT BY PATIENT [None]
  - INCONTINENCE [None]
